FAERS Safety Report 6231437-6 (Version None)
Quarter: 2009Q2

REPORT INFORMATION
  Report Type: 
  Country: None (occurrence: None)
  Receive Date: 20090611
  Receipt Date: 20090611
  Transmission Date: 20091009
  Serious: Yes (Hospitalization, Other)
  Sender: FDA-Public Use
  Company Number: None

PATIENT
  Age: 55 Year
  Sex: Male
  Weight: 102.0593 kg

DRUGS (4)
  1. LEVETIRACETAM [Suspect]
     Indication: EPILEPSY
     Dosage: 1000MG 2X DAILY PO
     Route: 048
     Dates: start: 20081101, end: 20090329
  2. KEPPRA [Concomitant]
  3. DEPAKOTE [Concomitant]
  4. ZONISAMIDE [Concomitant]

REACTIONS (3)
  - CONVULSION [None]
  - DYSARTHRIA [None]
  - EYE MOVEMENT DISORDER [None]
